FAERS Safety Report 5084356-5 (Version None)
Quarter: 2006Q3

REPORT INFORMATION
  Report Type: 
  Country: None (occurrence: None)
  Receive Date: 20060817
  Receipt Date: 20060817
  Transmission Date: 20061208
  Serious: Yes (Hospitalization)
  Sender: FDA-Public Use
  Company Number: None

PATIENT
  Sex: Female
  Weight: 60.782 kg

DRUGS (3)
  1. ERBITUX [Suspect]
     Indication: PANCREATIC CARCINOMA METASTATIC
     Dosage: 390MG  EVERY 3 WEEKS IV
     Route: 042
     Dates: start: 20060801
  2. GEMCITABINE [Suspect]
     Indication: PANCREATIC CARCINOMA METASTATIC
     Dosage: 1560 MG EVERY 3 WEEKS IV
     Route: 042
     Dates: start: 20060801
  3. OXALIPLATIN [Suspect]
     Indication: PANCREATIC CARCINOMA METASTATIC
     Dosage: 156MG EVERY 3 WEEKS IV
     Route: 042
     Dates: start: 20060802

REACTIONS (1)
  - PAIN IN EXTREMITY [None]
